FAERS Safety Report 17241158 (Version 1)
Quarter: 2020Q1

REPORT INFORMATION
  Report Type: Spontaneous
  Country: FR (occurrence: FR)
  Receive Date: 20200107
  Receipt Date: 20200107
  Transmission Date: 20200409
  Serious: Yes (Hospitalization)
  Sender: FDA-Public Use
  Company Number: PHHY2019FR228087

PATIENT
  Age: 69 Year
  Sex: Female
  Weight: 50 kg

DRUGS (3)
  1. SOMATULINE LP [Concomitant]
     Active Substance: LANREOTIDE ACETATE
     Indication: NEUROENDOCRINE TUMOUR
     Dosage: 120 MG, QMO
     Route: 058
     Dates: start: 20190828
  2. LUTATHERA [Suspect]
     Active Substance: LUTETIUM OXODOTREOTIDE LU-177
     Indication: NEUROENDOCRINE TUMOUR
     Dosage: 7415 MBQ, UNK
     Route: 042
  3. CETIRIZINE [Concomitant]
     Active Substance: CETIRIZINE HYDROCHLORIDE
     Indication: HYPERSENSITIVITY
     Dosage: IF NEEDED, AROUND EVERY 3 DAYS
     Route: 048

REACTIONS (3)
  - Hypertension [Unknown]
  - Ischaemic stroke [Recovered/Resolved with Sequelae]
  - Facial asymmetry [Recovered/Resolved with Sequelae]

NARRATIVE: CASE EVENT DATE: 20190914
